FAERS Safety Report 15362407 (Version 2)
Quarter: 2018Q4

REPORT INFORMATION
  Report Type: Spontaneous
  Country: JP (occurrence: JP)
  Receive Date: 20180907
  Receipt Date: 20181029
  Transmission Date: 20190204
  Serious: Yes (Other)
  Sender: FDA-Public Use
  Company Number: JP-PFIZER INC-2018355378

PATIENT
  Age: 22 Year
  Sex: Female
  Weight: 46.3 kg

DRUGS (8)
  1. SANMEL [Suspect]
     Active Substance: SODIUM ALGINATE
     Dosage: UNK
  2. ACETAMINOPHEN. [Suspect]
     Active Substance: ACETAMINOPHEN
     Dosage: UNK
  3. CELECOXIB. [Suspect]
     Active Substance: CELECOXIB
     Dosage: UNK
  4. SOLU-MEDROL [Suspect]
     Active Substance: METHYLPREDNISOLONE SODIUM SUCCINATE
     Dosage: UNK
  5. LIDOCAINE. [Suspect]
     Active Substance: LIDOCAINE
     Dosage: UNK
  6. PENTAZOCINE [Suspect]
     Active Substance: PENTAZOCINE
     Dosage: UNK
  7. BISOLVON [Suspect]
     Active Substance: BROMHEXINE HYDROCHLORIDE
     Dosage: UNK
  8. THEO-DUR [Suspect]
     Active Substance: THEOPHYLLINE ANHYDROUS
     Dosage: UNK

REACTIONS (1)
  - Anaphylactic shock [Unknown]
